FAERS Safety Report 5886637-1 (Version None)
Quarter: 2008Q3

REPORT INFORMATION
  Report Type: 
  Country: None (occurrence: None)
  Receive Date: 20080917
  Receipt Date: 20080909
  Transmission Date: 20090109
  Serious: Yes (Hospitalization)
  Sender: FDA-Public Use
  Company Number: PHHY2008JP21012

PATIENT

DRUGS (2)
  1. ZOMETA [Suspect]
     Route: 042
  2. HERCEPTIN [Concomitant]
     Route: 042

REACTIONS (1)
  - THROMBOSIS [None]
